FAERS Safety Report 6515881-5 (Version None)
Quarter: 2009Q4

REPORT INFORMATION
  Report Type: 
  Country: None (occurrence: None)
  Receive Date: 20091223
  Receipt Date: 20091218
  Transmission Date: 20100525
  Serious: Yes (Hospitalization)
  Sender: FDA-Public Use
  Company Number: US-AMGEN-QUU381309

PATIENT
  Age: 41 Year
  Sex: Male

DRUGS (11)
  1. ARANESP [Suspect]
     Indication: ANAEMIA
     Route: 058
  2. PROSCAR [Concomitant]
  3. LASIX [Concomitant]
  4. TRANDATE [Concomitant]
  5. LISINOPRIL [Concomitant]
  6. ANTIVERT [Concomitant]
  7. PROCARDIA [Concomitant]
  8. ZAROXOLYN [Concomitant]
  9. ZOSYN [Concomitant]
  10. FLOMAX [Concomitant]
  11. AMBIEN [Concomitant]

REACTIONS (2)
  - ANAEMIA [None]
  - DECUBITUS ULCER [None]
